FAERS Safety Report 14460583 (Version 1)
Quarter: 2018Q1

REPORT INFORMATION
  Report Type: Spontaneous
  Country: US (occurrence: US)
  Receive Date: 20180130
  Receipt Date: 20180130
  Transmission Date: 20180509
  Serious: No
  Sender: FDA-Public Use
  Company Number: None

PATIENT

DRUGS (16)
  1. VITAMIN D3 [Concomitant]
     Active Substance: CHOLECALCIFEROL
  2. CALCIUM [Concomitant]
     Active Substance: CALCIUM
  3. NIACIN. [Concomitant]
     Active Substance: NIACIN
  4. ECHINASIA [Concomitant]
  5. LUTIEN [Concomitant]
  6. BEN-A-FIBER [Concomitant]
  7. FIBER PILLS [Concomitant]
  8. ZINC. [Concomitant]
     Active Substance: ZINC
  9. PROLIA [Suspect]
     Active Substance: DENOSUMAB
     Indication: OSTEOPOROSIS
     Dates: start: 20171205
  10. VITAMIN E [Concomitant]
     Active Substance: .ALPHA.-TOCOPHEROL
  11. VIT B [Concomitant]
     Active Substance: VITAMIN B
  12. VALIUM [Concomitant]
     Active Substance: DIAZEPAM
  13. BIOTIN [Concomitant]
     Active Substance: BIOTIN
  14. THYROID [Concomitant]
     Active Substance: LEVOTHYROXINE\LIOTHYRONINE
  15. MAGNESIUM [Concomitant]
     Active Substance: MAGNESIUM
  16. COLACE [Concomitant]
     Active Substance: DOCUSATE SODIUM

REACTIONS (7)
  - Myalgia [None]
  - Skin warm [None]
  - Chills [None]
  - Pain of skin [None]
  - Arthralgia [None]
  - Pyrexia [None]
  - Bone pain [None]
